FAERS Safety Report 11107110 (Version 1)
Quarter: 2015Q2

REPORT INFORMATION
  Report Type: Spontaneous
  Country: US (occurrence: US)
  Receive Date: 20150512
  Receipt Date: 20150512
  Transmission Date: 20150821
  Serious: No
  Sender: FDA-Public Use
  Company Number: US-LEO PHARMA-234063

PATIENT
  Age: 57 Year
  Sex: Male

DRUGS (1)
  1. PICATO [Suspect]
     Active Substance: INGENOL MEBUTATE
     Indication: ACTINIC KERATOSIS

REACTIONS (9)
  - Application site erythema [Recovering/Resolving]
  - Application site vesicles [Recovering/Resolving]
  - Application site exfoliation [Recovering/Resolving]
  - Application site reaction [Recovering/Resolving]
  - Application site swelling [Recovering/Resolving]
  - Application site scab [Recovering/Resolving]
  - Application site warmth [Recovering/Resolving]
  - Drug administration error [Unknown]
  - Application site pain [Recovering/Resolving]
